FAERS Safety Report 9614788 (Version 1)
Quarter: 2013Q4

REPORT INFORMATION
  Report Type: Spontaneous
  Country: US (occurrence: None)
  Receive Date: 20131009
  Receipt Date: 20131009
  Transmission Date: 20140711
  Serious: No
  Sender: FDA-Public Use
  Company Number: None

PATIENT
  Age: 77 Year
  Sex: Female
  Weight: 68.04 kg

DRUGS (1)
  1. FEMARA [Suspect]
     Indication: BREAST CANCER METASTATIC
     Dosage: ONE PILL ONCE DAILY TAKEN BY MOUTH
     Route: 048

REACTIONS (3)
  - Nocturia [None]
  - Pollakiuria [None]
  - Blood creatine increased [None]
